FAERS Safety Report 15546920 (Version 2)
Quarter: 2018Q4

REPORT INFORMATION
  Report Type: Report from Study
  Country: US (occurrence: US)
  Receive Date: 20181024
  Receipt Date: 20181213
  Transmission Date: 20190205
  Serious: Yes (Death, Hospitalization, Other)
  Sender: FDA-Public Use
  Company Number: US-TAKEDA-2018TUS030421

PATIENT
  Sex: Female

DRUGS (2)
  1. AMLODIPINE [Suspect]
     Active Substance: AMLODIPINE BESYLATE
     Indication: HYPERTENSION
     Dosage: 5 MG, UNK
     Route: 065
  2. PONATINIB [Suspect]
     Active Substance: PONATINIB
     Indication: CHRONIC MYELOID LEUKAEMIA
     Dosage: 30 MG, QD
     Route: 048
     Dates: start: 20180713

REACTIONS (7)
  - Disorientation [Unknown]
  - Confusional state [Unknown]
  - Sepsis [Unknown]
  - Death [Fatal]
  - Urinary tract infection [Unknown]
  - Fall [Unknown]
  - Hypertension [Unknown]
